FAERS Safety Report 11891531 (Version 1)
Quarter: 2016Q1

REPORT INFORMATION
  Report Type: Spontaneous
  Country: US (occurrence: None)
  Receive Date: 20160105
  Receipt Date: 20160105
  Transmission Date: 20160526
  Serious: Yes (Life-Threatening, Hospitalization)
  Sender: FDA-Public Use
  Company Number: None

PATIENT
  Age: 54 Year
  Weight: 102.51 kg

DRUGS (14)
  1. SUMATRIPTAN IMITREX [Concomitant]
  2. CYANOCOBALAMIN VITAMIN B-12 [Concomitant]
  3. CYCLOBENZAPRINE FLEXERIL [Concomitant]
  4. DIMETHYL FUMARATE TECFIDERA [Concomitant]
  5. TECFIDERA [Suspect]
     Active Substance: DIMETHYL FUMARATE
     Indication: MULTIPLE SCLEROSIS
     Dosage: 1 PILL TWICE DAILY
     Route: 048
  6. IRBESARTAN-HYDROCHLOROTHIAZIDE AVALIDE [Concomitant]
  7. LORAZEPAM. [Concomitant]
     Active Substance: LORAZEPAM
  8. NAPROXEN NAPROSYN [Concomitant]
  9. LIDOCAINE 5 % PATCH LIDODERM [Concomitant]
  10. BACLOFEN LIORESAL [Concomitant]
  11. FOLIC ACID FOLVITE [Concomitant]
  12. FAMOTIDINE PEPCID [Concomitant]
  13. IBUPROFEN ADVIL,MOTRIN [Concomitant]
  14. CELEXA [Concomitant]
     Active Substance: CITALOPRAM HYDROBROMIDE

REACTIONS (5)
  - Dyspnoea [None]
  - Chest pain [None]
  - Cold sweat [None]
  - Heart rate abnormal [None]
  - Blood pressure abnormal [None]

NARRATIVE: CASE EVENT DATE: 20151225
